FAERS Safety Report 16926137 (Version 1)
Quarter: 2019Q4

REPORT INFORMATION
  Report Type: Spontaneous
  Country: KW (occurrence: KW)
  Receive Date: 20191016
  Receipt Date: 20191016
  Transmission Date: 20200122
  Serious: Yes (Other)
  Sender: FDA-Public Use
  Company Number: KW-ALEMBIC PHARMACUETICALS LIMITED-2019SCAL000755

PATIENT

DRUGS (13)
  1. RISPERIDONE. [Concomitant]
     Active Substance: RISPERIDONE
     Indication: AUTISM SPECTRUM DISORDER
  2. NALTREXONE [Concomitant]
     Active Substance: NALTREXONE
     Indication: AUTISM SPECTRUM DISORDER
  3. SERTRALINE [Concomitant]
     Active Substance: SERTRALINE HYDROCHLORIDE
     Indication: AUTISM SPECTRUM DISORDER
  4. VALPROATE [Concomitant]
     Active Substance: VALPROIC ACID
     Indication: EPILEPSY
     Dosage: 25 MG/KG
  5. ARIPIPRAZOLE. [Suspect]
     Active Substance: ARIPIPRAZOLE
     Indication: EPILEPSY
     Dosage: 7.5 MILLIGRAM, OD FOR 6 WEEKS
     Route: 065
  6. CLONIDINE HYDROCHLORIDE. [Suspect]
     Active Substance: CLONIDINE HYDROCHLORIDE
     Indication: AUTISM SPECTRUM DISORDER
  7. SERTRALINE [Concomitant]
     Active Substance: SERTRALINE HYDROCHLORIDE
     Indication: EPILEPSY
     Dosage: 20 MILLIGRAM, OD
     Route: 065
  8. ARIPIPRAZOLE. [Suspect]
     Active Substance: ARIPIPRAZOLE
     Indication: AUTISM SPECTRUM DISORDER
  9. CLONIDINE HYDROCHLORIDE. [Suspect]
     Active Substance: CLONIDINE HYDROCHLORIDE
     Indication: EPILEPSY
     Dosage: 300 MICROGRAM, OD
     Route: 065
  10. CLONAZEPAM. [Suspect]
     Active Substance: CLONAZEPAM
     Indication: AUTISM SPECTRUM DISORDER
  11. NALTREXONE [Concomitant]
     Active Substance: NALTREXONE
     Indication: EPILEPSY
     Dosage: 12.5 MILLIGRAM, OD
     Route: 065
  12. CLONAZEPAM. [Suspect]
     Active Substance: CLONAZEPAM
     Indication: EPILEPSY
     Dosage: 1.5 MILLIGRAM, OD
     Route: 065
  13. RISPERIDONE. [Concomitant]
     Active Substance: RISPERIDONE
     Indication: EPILEPSY
     Dosage: 2 MILLIGRAM, OD
     Route: 065

REACTIONS (6)
  - Tremor [Unknown]
  - Weight increased [Unknown]
  - Hyperprolactinaemia [Unknown]
  - Treatment failure [Unknown]
  - Presyncope [Unknown]
  - Salivary hypersecretion [Unknown]
